FAERS Safety Report 4328941-4 (Version None)
Quarter: 2004Q1

REPORT INFORMATION
  Report Type: 
  Country: None (occurrence: None)
  Receive Date: 20040331
  Receipt Date: 20040331
  Transmission Date: 20041129
  Serious: Yes (Hospitalization, Disabling)
  Sender: FDA-Public Use
  Company Number: None

PATIENT
  Age: 44 Year
  Sex: Female
  Weight: 58.0604 kg

DRUGS (2)
  1. EFFEXOR XR [Suspect]
     Indication: DEPRESSION
     Dosage: 75 MG PO QD
     Route: 048
     Dates: start: 20030701, end: 20030715
  2. TRANSDERM SCOPOLAMINE PATCH [Suspect]
     Indication: DIZZINESS
     Dosage: ONE PATCH TRANSDERMAL
     Route: 062
     Dates: start: 20031009, end: 20031010

REACTIONS (13)
  - ACCOMMODATION DISORDER [None]
  - AGITATION [None]
  - DIZZINESS [None]
  - DYSARTHRIA [None]
  - MENTAL DISORDER [None]
  - MUSCULAR WEAKNESS [None]
  - MYDRIASIS [None]
  - TREMOR [None]
  - VERTIGO [None]
  - VISION BLURRED [None]
  - VISUAL DISTURBANCE [None]
  - VOMITING [None]
  - WEIGHT DECREASED [None]
